FAERS Safety Report 12221272 (Version 1)
Quarter: 2016Q1

REPORT INFORMATION
  Report Type: Spontaneous
  Country: US (occurrence: US)
  Receive Date: 20160330
  Receipt Date: 20160330
  Transmission Date: 20160526
  Serious: No
  Sender: FDA-Public Use
  Company Number: US-MYLANLABS-2015M1011257

PATIENT
  Age: 55 Year
  Sex: Female
  Weight: 65.76 kg

DRUGS (1)
  1. ESTRADIOL. [Suspect]
     Active Substance: ESTRADIOL
     Indication: PREMATURE MENOPAUSE
     Dosage: 0.05 MG, QD APPLIED WEEKLY
     Route: 062
     Dates: start: 201501, end: 201503

REACTIONS (1)
  - Dermal absorption impaired [Recovered/Resolved]

NARRATIVE: CASE EVENT DATE: 201501
